FAERS Safety Report 6500167-5 (Version None)
Quarter: 2009Q4

REPORT INFORMATION
  Report Type: 
  Country: None (occurrence: None)
  Receive Date: 20091216
  Receipt Date: 20091215
  Transmission Date: 20100525
  Serious: Yes (Hospitalization)
  Sender: FDA-Public Use
  Company Number: DE-ABBOTT-09P-062-0612928-00

PATIENT
  Sex: Male
  Weight: 117 kg

DRUGS (3)
  1. KALETRA [Suspect]
     Indication: HIV INFECTION
     Route: 048
     Dates: start: 20071104
  2. TRUVADA [Concomitant]
     Indication: HIV INFECTION
     Route: 048
     Dates: start: 20071104
  3. BISOPROLOL [Concomitant]
     Indication: HYPERTENSION
     Route: 048
     Dates: start: 20090721

REACTIONS (5)
  - ARACHNOID CYST [None]
  - BIPOLAR DISORDER [None]
  - ESSENTIAL HYPERTENSION [None]
  - MANIA [None]
  - SUICIDAL IDEATION [None]
